FAERS Safety Report 18918525 (Version 2)
Quarter: 2022Q2

REPORT INFORMATION
  Report Type: Spontaneous
  Country: CA (occurrence: None)
  Receive Date: 20210219
  Receipt Date: 20220601
  Transmission Date: 20220721
  Serious: Yes (Other)
  Sender: FDA-Public Use
  Company Number: CA-ROCHE-2768874

PATIENT
  Age: 49 Year
  Sex: Female

DRUGS (11)
  1. XELODA [Suspect]
     Active Substance: CAPECITABINE
     Indication: Breast cancer female
     Route: 065
  2. CLODRONATE DISODIUM [Suspect]
     Active Substance: CLODRONATE DISODIUM
     Indication: Breast cancer female
     Route: 065
  3. ERIBULIN MESYLATE [Suspect]
     Active Substance: ERIBULIN MESYLATE
     Indication: Breast cancer female
     Route: 065
  4. FULVESTRANT [Suspect]
     Active Substance: FULVESTRANT
     Indication: Breast cancer female
     Route: 005
  5. IBRANCE [Suspect]
     Active Substance: PALBOCICLIB
     Indication: Breast cancer female
     Route: 048
  6. LETROZOLE [Suspect]
     Active Substance: LETROZOLE
     Indication: Breast cancer female
     Route: 065
  7. PACLITAXEL [Suspect]
     Active Substance: PACLITAXEL
     Indication: Breast cancer female
     Route: 042
  8. PACLITAXEL [Suspect]
     Active Substance: PACLITAXEL
     Route: 042
  9. TAMOXIFEN [Suspect]
     Active Substance: TAMOXIFEN
     Indication: Breast cancer female
     Route: 048
  10. CLODRONATE DISODIUM [Suspect]
     Active Substance: CLODRONATE DISODIUM
     Indication: Breast cancer female
     Route: 065
  11. ERIBULIN [Suspect]
     Active Substance: ERIBULIN
     Indication: Breast cancer female
     Route: 065

REACTIONS (7)
  - Asthenia [Unknown]
  - Headache [Unknown]
  - Immunosuppression [Unknown]
  - Malignant neoplasm progression [Unknown]
  - Meningoencephalitis herpetic [Unknown]
  - Platelet count decreased [Unknown]
  - Protein total increased [Unknown]
